FAERS Safety Report 9280326 (Version 3)
Quarter: 2013Q3

REPORT INFORMATION
  Report Type: Report from Study
  Country: AU (occurrence: AU)
  Receive Date: 20130509
  Receipt Date: 20130805
  Transmission Date: 20140515
  Serious: Yes (Hospitalization, Other)
  Sender: FDA-Public Use
  Company Number: AU-ELI_LILLY_AND_COMPANY-AU201305001271

PATIENT
  Sex: Female
  Weight: 53 kg

DRUGS (15)
  1. TERIPARATIDE [Suspect]
     Indication: OSTEOPOROSIS
     Dosage: 20 UG, QD
     Route: 058
     Dates: start: 20130126
  2. MICARDIS [Concomitant]
     Dosage: UNK, QD
  3. FLU [Concomitant]
     Dosage: UNK, SINGLE
  4. ASPIRIN [Concomitant]
     Indication: PROPHYLAXIS
     Dosage: 100 MG, EACH MORNING
  5. ATENOLOL [Concomitant]
     Indication: HYPERTENSION
     Dosage: 50 MG, EACH MORNING
  6. CALTRATE                           /00944201/ [Concomitant]
     Indication: MINERAL SUPPLEMENTATION
     Dosage: 500 MG, QD
  7. CHOLECALCIFEROL [Concomitant]
     Indication: VITAMIN SUPPLEMENTATION
     Dosage: 2000 IU, QD
  8. DIAZEPAM [Concomitant]
     Indication: ANXIETY
     Dosage: 5 MG, EACH EVENING
  9. EZETIMIBE [Concomitant]
     Indication: BLOOD CHOLESTEROL INCREASED
     Dosage: 10 MG, QD
  10. IBUPROFEN [Concomitant]
     Dosage: 200 MG, UNK
  11. LERCANIDIPINE [Concomitant]
     Indication: HYPERTENSION
     Dosage: 10 MG, EACH MORNING
  12. MAGNESIUM [Concomitant]
     Indication: MINERAL SUPPLEMENTATION
  13. MOVICOL                            /01625101/ [Concomitant]
  14. OMEPRAZOL                          /00661201/ [Concomitant]
     Indication: GASTROOESOPHAGEAL REFLUX DISEASE
     Dosage: 20 MG, EACH MORNING
  15. PANADEINE                          /00116401/ [Concomitant]

REACTIONS (15)
  - Dyspnoea [Recovering/Resolving]
  - Oxygen saturation decreased [Recovering/Resolving]
  - Oedema peripheral [Unknown]
  - Constipation [Recovered/Resolved]
  - Crepitations [Unknown]
  - Nasopharyngitis [Unknown]
  - Anxiety [Recovering/Resolving]
  - Stress [Unknown]
  - Hyponatraemia [Unknown]
  - Multiple fractures [Unknown]
  - Lower respiratory tract infection [Recovering/Resolving]
  - Chest pain [Recovering/Resolving]
  - Pneumonia [Unknown]
  - Hypertension [Unknown]
  - Carotid artery occlusion [Unknown]
